FAERS Safety Report 10593372 (Version 2)
Quarter: 2015Q2

REPORT INFORMATION
  Report Type: Spontaneous
  Country: US (occurrence: US)
  Receive Date: 20141119
  Receipt Date: 20150519
  Transmission Date: 20150821
  Serious: Yes (Death, Other)
  Sender: FDA-Public Use
  Company Number: US-GLAXOSMITHKLINE-US2014GSK023078

PATIENT
  Age: 72 Year
  Sex: Male
  Weight: 89.8 kg

DRUGS (23)
  1. TAFINLAR [Suspect]
     Active Substance: DABRAFENIB MESYLATE
     Indication: THYROID CANCER
     Dosage: 150 MG, BID
     Route: 048
     Dates: start: 201409, end: 20141002
  2. CLONAZEPAM. [Concomitant]
     Active Substance: CLONAZEPAM
  3. SYNTHROID [Concomitant]
     Active Substance: LEVOTHYROXINE SODIUM
  4. PREDNISONE. [Concomitant]
     Active Substance: PREDNISONE
  5. TRIAMCINOLONE ACETONIDE + BENZALCONIUM CHLORIDE + SALICYLIC ACID [Concomitant]
  6. ECOTRIN [Concomitant]
     Active Substance: ASPIRIN
  7. BUDESONID [Concomitant]
     Active Substance: BUDESONIDE
  8. FUROSEMIDE. [Concomitant]
     Active Substance: FUROSEMIDE
  9. CALCIUM WITH VITAMIN D [Concomitant]
     Active Substance: CALCIUM\VITAMIN D
  10. LORAZEPAM. [Concomitant]
     Active Substance: LORAZEPAM
  11. LACTULOSE. [Concomitant]
     Active Substance: LACTULOSE
  12. ACETYLCYSTEINE. [Concomitant]
     Active Substance: ACETYLCYSTEINE
  13. VENTOLIN [Concomitant]
     Active Substance: ALBUTEROL SULFATE
  14. NIFEDIPINE. [Concomitant]
     Active Substance: NIFEDIPINE
  15. SPIRIVA [Concomitant]
     Active Substance: TIOTROPIUM BROMIDE MONOHYDRATE
  16. POTASSIUM CHLORIDE. [Concomitant]
     Active Substance: POTASSIUM CHLORIDE
  17. FLAXSEED [Concomitant]
     Active Substance: FLAX SEED
  18. SENNA [Concomitant]
     Active Substance: SENNA LEAF\SENNOSIDES\SENNOSIDES A AND B
  19. DIGOXIN-SPECIFIC ANTIBODY FRAGMENT [Concomitant]
  20. ENOXAPARIN [Concomitant]
     Active Substance: ENOXAPARIN
  21. ALBUTEROL. [Concomitant]
     Active Substance: ALBUTEROL
  22. METOPROLOL [Concomitant]
     Active Substance: METOPROLOL
  23. MUCINEX [Concomitant]
     Active Substance: GUAIFENESIN

REACTIONS (5)
  - Drug ineffective [Unknown]
  - Death [Fatal]
  - Metastases to lung [Unknown]
  - Metastases to bone [Unknown]
  - Disease progression [Unknown]

NARRATIVE: CASE EVENT DATE: 20141014
